FAERS Safety Report 10720315 (Version 1)
Quarter: 2015Q1

REPORT INFORMATION
  Report Type: Spontaneous
  Country: US (occurrence: US)
  Receive Date: 20150119
  Receipt Date: 20150119
  Transmission Date: 20150721
  Serious: No
  Sender: FDA-Public Use
  Company Number: US-UNITED THERAPEUTICS-UNT-2014-007437

PATIENT
  Sex: Male
  Weight: 77.98 kg

DRUGS (2)
  1. ADCIRCA [Concomitant]
     Active Substance: TADALAFIL
     Indication: PRODUCT USED FOR UNKNOWN INDICATION
  2. TYVASO [Suspect]
     Active Substance: TREPROSTINIL
     Indication: COR PULMONALE CHRONIC
     Dosage: 72 ?G, QID
     Dates: start: 20140215

REACTIONS (3)
  - Oropharyngeal pain [Unknown]
  - Dyspnoea exertional [Unknown]
  - Cough [Unknown]

NARRATIVE: CASE EVENT DATE: 2014
